FAERS Safety Report 9591966 (Version 2)
Quarter: 2013Q4

REPORT INFORMATION
  Report Type: Spontaneous
  Country: GB (occurrence: GB)
  Receive Date: 20131004
  Receipt Date: 20131004
  Transmission Date: 20140711
  Serious: Yes (Disabling, Other)
  Sender: FDA-Public Use
  Company Number: GB-PFIZER INC-2013242306

PATIENT
  Age: 49 Year
  Sex: Female
  Weight: 118 kg

DRUGS (51)
  1. LYRICA [Suspect]
     Indication: ANXIETY
     Dosage: 50 MG, 2X/DAY
     Route: 048
     Dates: start: 20130809
  2. LYRICA [Suspect]
     Dosage: 100 MG, 2X/DAY
  3. ALGESAL [Concomitant]
     Dosage: 1 PACK OF 50 GRAMS, APPLY AS NEEDED
     Dates: start: 20130724
  4. ALGESAL [Concomitant]
     Dosage: 1 PACK OF 50 GRAMS, APPLY AS NEEDED
     Dates: start: 20130808
  5. ATENOLOL [Concomitant]
     Indication: BLOOD PRESSURE
     Dosage: 50 MG, TAKE 1 EACH MORNING
     Dates: start: 20130627
  6. ATENOLOL [Concomitant]
     Indication: CARDIOVASCULAR DISORDER
     Dosage: 25 MG, 1X/DAY
     Dates: start: 20130724
  7. ATENOLOL [Concomitant]
     Dosage: 25 MG, 1X/DAY
     Dates: start: 20130806
  8. ATENOLOL [Concomitant]
     Dosage: 25 MG, TAKE ONE A DAY FOR BLOOD PRESSURE
     Dates: start: 20130905
  9. DIAZEPAM [Concomitant]
     Dosage: 2 MG, 1 AS NEEDED
     Dates: start: 20130724
  10. DIAZEPAM [Concomitant]
     Dosage: 2 MG, 1 AS NEEDED
     Dates: start: 20130808
  11. DIAZEPAM [Concomitant]
     Dosage: 5 MG, AS NEEDED
     Dates: start: 20130823
  12. TRAMADOL [Concomitant]
     Dosage: 50 MG, TAKE 1 UP TO 4 TIMES DAILY
     Dates: start: 20130724
  13. TRAMADOL [Concomitant]
     Dosage: 50 MG, TAKE 1 UP TO 4 TIMES DAILY
     Dates: start: 20130806
  14. TRAMADOL [Concomitant]
     Dosage: 50 MG, TAKE 1 UP TO 4 TIMES DAILY
     Dates: start: 20130808
  15. TRAMADOL [Concomitant]
     Dosage: 50 MG, TAKE 1 UP TO 4 TIMES DAILY
     Dates: start: 20130905
  16. SALBUTAMOL [Concomitant]
     Dosage: 100 UG, INHALE 2 DOSES AS NEEDED
     Dates: start: 20130808
  17. SALBUTAMOL [Concomitant]
     Dosage: 100 UG, INHALE 2 DOSES AS NEEDED
     Dates: start: 20130814
  18. SALBUTAMOL [Concomitant]
     Dosage: 100 UG, INHALE 2 DOSES AS NEEDED
     Dates: start: 20130819
  19. CLOPIDOGREL [Concomitant]
     Indication: CARDIOVASCULAR DISORDER
     Dosage: 75 MG, 1X/DAY
     Dates: start: 20130130
  20. LANTUS [Concomitant]
     Indication: ENDOCRINE DISORDER
     Dosage: 40 UNITS NOCTE
     Dates: start: 20130522
  21. LANTUS [Concomitant]
     Indication: NUTRITIONAL CONDITION ABNORMAL
  22. LANTUS [Concomitant]
     Indication: METABOLIC DISORDER
  23. LANTUS [Concomitant]
     Indication: IMMUNE SYSTEM DISORDER
  24. ALVERINE [Concomitant]
     Indication: GYNAECOLOGICAL EXAMINATION
     Dosage: 120 MG, 3X/DAY (2 X 60MG CAPSULES THREE TIMES PER DAY
     Dates: start: 20130709
  25. ASPIRIN [Concomitant]
     Indication: CARDIOVASCULAR DISORDER
     Dosage: 75 MG, UNK IN THE MORNING
     Dates: start: 20130709
  26. FERROUS SULFATE [Concomitant]
     Indication: GASTROINTESTINAL DISORDER
     Dosage: 200 MG, TAKE 1 THREE TIMES DAILY
     Dates: start: 20130709
  27. FUROSEMIDE [Concomitant]
     Indication: CARDIOVASCULAR DISORDER
     Dosage: 40 MG, TAKE ONE EACH MORNING
     Dates: start: 20130709
  28. GLYCERYL TRINITRATE [Concomitant]
     Indication: CARDIOVASCULAR DISORDER
     Dosage: 400 UG, ONE OR TWO PUFFS AS NEEDED
     Dates: start: 20130709
  29. METOCLOPRAMIDE [Concomitant]
     Indication: GASTROINTESTINAL DISORDER
     Dosage: 10 MG, TAKE 1 THREE TIMES A DAY
     Dates: start: 20130709
  30. MIRTAZAPINE [Concomitant]
     Indication: MENTAL DISORDER
     Dosage: 45 MG, 1X/DAY AT NIGHT
     Dates: start: 20130709
  31. NORETHISTERONE [Concomitant]
     Indication: GYNAECOLOGICAL EXAMINATION
     Dosage: 5 MG, UNK CYCLIC DAY 5 TO DAY 21
     Dates: start: 20130709
  32. OMEPRAZOLE [Concomitant]
     Indication: GASTROINTESTINAL DISORDER
     Dosage: 20 MG, UNK TAKE 2 IN THE MORNING
     Dates: start: 20130709
  33. PARACETAMOL [Concomitant]
     Indication: MUSCULOSKELETAL DISORDER
     Dosage: 1000 MG, 4X/DAY (2 X 500MG TABLETS 4 TIMES PER DAY)
     Dates: start: 20130709, end: 20130905
  34. PARACETAMOL [Concomitant]
     Indication: NERVOUS SYSTEM DISORDER
  35. QUETIAPINE [Concomitant]
     Indication: MENTAL DISORDER
     Dosage: 150 MG, TAKE 1 AT 6PM
     Dates: start: 20130709
  36. QUETIAPINE [Concomitant]
     Dosage: 200 MG, 2 AT NIGHT
     Dates: start: 20130709
  37. QUETIAPINE [Concomitant]
     Dosage: 25 MG TABLETS, TAKE 2 EACH MORNING AND TWO AT NIGHT
     Dates: start: 20130709
  38. RAMIPRIL [Concomitant]
     Dosage: 1.25 MG, 1X/DAY IN THE MORNING
     Dates: start: 20130709
  39. SIMVASTATIN [Concomitant]
     Indication: ENDOCRINE DISORDER
     Dosage: 40 MG, TAKE ONE AT NIGHT
     Dates: start: 20130709
  40. SIMVASTATIN [Concomitant]
     Indication: NUTRITIONAL CONDITION ABNORMAL
  41. SIMVASTATIN [Concomitant]
     Indication: METABOLIC DISORDER
  42. SIMVASTATIN [Concomitant]
     Indication: IMMUNE SYSTEM DISORDER
  43. VENLAFAXINE [Concomitant]
     Indication: MENTAL DISORDER
     Dosage: 150MG, TAKE ONE IN THE MORNING
     Dates: start: 20130709
  44. VENLAFAXINE [Concomitant]
     Dosage: 75 MG, TAKE ONE IN THE MORNING
     Dates: start: 20130709
  45. WARFARIN [Concomitant]
     Indication: CARDIOVASCULAR DISORDER
     Dosage: 1 MG, TAKE ONE AS DIRECTED
     Dates: start: 20130709
  46. WARFARIN [Concomitant]
     Dosage: 3 MG, TAKE ONE AS DIRECTED
     Dates: start: 20130709
  47. WARFARIN [Concomitant]
     Dosage: 500 UG, TAKE ONE AS DIRECTED
     Dates: start: 20130806
  48. ISOSORBIDE MONONITRATE [Concomitant]
     Indication: CARDIOVASCULAR DISORDER
     Dosage: 10 MG, TAKE 2 TWICE DAILY
     Dates: start: 20130806
  49. LOPERAMIDE [Concomitant]
     Indication: GASTROINTESTINAL DISORDER
     Dosage: 2 MG, TAKE 1 OR 2 AS DIRECTED
     Dates: start: 20130806
  50. TEMAZEPAM [Concomitant]
     Indication: MENTAL DISORDER
     Dosage: 20 MG, TAKE ONE AT NIGHT
     Dates: start: 20130806
  51. CODEINE [Concomitant]
     Indication: GASTROINTESTINAL DISORDER
     Dosage: 15 MG, TAKE ONE 4 TIMES A DAY
     Dates: start: 20130905

REACTIONS (3)
  - IVth nerve paralysis [Unknown]
  - Diplopia [Unknown]
  - Vision blurred [Unknown]
